FAERS Safety Report 5636070-2 (Version None)
Quarter: 2008Q1

REPORT INFORMATION
  Report Type: 
  Country: None (occurrence: None)
  Receive Date: 20080219
  Receipt Date: 20080204
  Transmission Date: 20080703
  Serious: Yes (Disabling)
  Sender: FDA-Public Use
  Company Number: 2008S1001789

PATIENT
  Age: 72 Year
  Sex: Male

DRUGS (8)
  1. INDAPAMIDE [Suspect]
     Indication: DRUG USE FOR UNKNOWN INDICATION
     Dosage: 2.5 MG;
     Dates: start: 20071113, end: 20080124
  2. CO-CODAMOL (CON.) [Concomitant]
  3. QUININE SULPHATE (CON.) [Concomitant]
  4. QVAR (CON.) [Concomitant]
  5. RAMIPRIL (CON.) [Concomitant]
  6. SALBUTAMOL (CON.) [Concomitant]
  7. SALMETEROL (CON.) [Concomitant]
  8. SIMVASTATIN (CON.) [Concomitant]

REACTIONS (1)
  - MYALGIA [None]
